FAERS Safety Report 11342985 (Version 1)
Quarter: 2015Q3

REPORT INFORMATION
  Report Type: Spontaneous
  Country: DE (occurrence: DE)
  Receive Date: 20150805
  Receipt Date: 20150805
  Transmission Date: 20151125
  Serious: Yes (Other)
  Sender: FDA-Public Use
  Company Number: DE-AMEDRA PHARMACEUTICALS LLC-2015AMD00154

PATIENT
  Sex: Male

DRUGS (1)
  1. FLUKIVER COMBI 3 [Suspect]
     Active Substance: CLOSANTEL\MEBENDAZOLE
     Indication: PRODUCT USED FOR UNKNOWN INDICATION
     Dosage: 4 ML, 3X/DAY
     Route: 048

REACTIONS (5)
  - Visual field defect [None]
  - Accidental overdose [Recovered/Resolved]
  - Visual impairment [None]
  - Visual acuity reduced [Recovered/Resolved]
  - Oral dysaesthesia [None]
